FAERS Safety Report 6204036-X (Version None)
Quarter: 2009Q2

REPORT INFORMATION
  Report Type: 
  Country: None (occurrence: None)
  Receive Date: 20090521
  Receipt Date: 20090507
  Transmission Date: 20091009
  Serious: Yes (Other)
  Sender: FDA-Public Use
  Company Number: HECT-1000048

PATIENT
  Age: 58 Year
  Sex: Male
  Weight: 62.5 kg

DRUGS (12)
  1. HECTOROL [Suspect]
     Indication: HYPERPARATHYROIDISM SECONDARY
     Dosage: 4 MCG, INTRAVENOUS
     Route: 042
     Dates: start: 20090109, end: 20090311
  2. SENSIPAR [Concomitant]
  3. ATENOLOL [Concomitant]
  4. LOVASTATIN [Concomitant]
  5. INSULIN (INSULIN) [Concomitant]
  6. FOSRENOL [Concomitant]
  7. BABY ASPIRIN (ACETLYSALICYLIC ACID) [Concomitant]
  8. COZAAR [Concomitant]
  9. NORVASC [Concomitant]
  10. MINOXIDIL [Concomitant]
  11. RENAGEL (SEVELAMER HYDROCHLOIRDE) [Concomitant]
  12. PHOSLO [Concomitant]

REACTIONS (3)
  - BLOOD PARATHYROID HORMONE INCREASED [None]
  - CONVULSION [None]
  - HYPERCALCAEMIA [None]
